FAERS Safety Report 6312488-X (Version None)
Quarter: 2009Q3

REPORT INFORMATION
  Report Type: 
  Country: None (occurrence: None)
  Receive Date: 20090813
  Receipt Date: 20090804
  Transmission Date: 20100115
  Serious: Yes (Hospitalization)
  Sender: FDA-Public Use
  Company Number: 2009AL002835

PATIENT
  Age: 77 Year
  Sex: Female

DRUGS (15)
  1. DIGOXIN [Suspect]
     Dosage: 0.25MG, DAILY, PO
     Route: 048
     Dates: start: 20070612
  2. ANTIVERT [Concomitant]
  3. ATIVAN [Concomitant]
  4. CATAPRES [Concomitant]
  5. CIPROFLOXACIN [Concomitant]
  6. DETROL [Concomitant]
  7. POTASSIUM CHLORIDE [Concomitant]
  8. METOLAZONE [Concomitant]
  9. QUINAGLUTE [Concomitant]
  10. ZETIA [Concomitant]
  11. KLOR-CON [Concomitant]
  12. PHENAZOPYRID [Concomitant]
  13. FLUCONAZOLE [Concomitant]
  14. NITROFUR [Concomitant]
  15. AMPICILLIN [Concomitant]

REACTIONS (18)
  - ARRHYTHMIA [None]
  - ASTHENIA [None]
  - BACTERIA URINE IDENTIFIED [None]
  - BRADYCARDIA [None]
  - CARDIAC FAILURE CONGESTIVE [None]
  - CARDIAC MURMUR [None]
  - CHEST PAIN [None]
  - DIZZINESS [None]
  - EATING DISORDER [None]
  - ECONOMIC PROBLEM [None]
  - FEELING ABNORMAL [None]
  - FOREIGN BODY TRAUMA [None]
  - HYPERTENSIVE HEART DISEASE [None]
  - INJURY [None]
  - NAUSEA [None]
  - PSEUDOMONAS INFECTION [None]
  - RENAL FAILURE [None]
  - THERAPEUTIC AGENT TOXICITY [None]
